FAERS Safety Report 13713612 (Version 1)
Quarter: 2017Q3

REPORT INFORMATION
  Report Type: Spontaneous
  Country: US (occurrence: US)
  Receive Date: 20170704
  Receipt Date: 20170704
  Transmission Date: 20171127
  Serious: Yes (Other)
  Sender: FDA-Public Use
  Company Number: US-WEST-WARD PHARMACEUTICALS CORP.-US-H14001-17-02158

PATIENT
  Sex: Male

DRUGS (2)
  1. THIOTEPA. [Suspect]
     Active Substance: THIOTEPA
     Indication: CNS GERMINOMA
     Dosage: TWO DAYS/CYCLE: CUMULATIVE DOSE OF 1200 MG/M2
     Route: 065
  2. ETOPOSIDE. [Suspect]
     Active Substance: ETOPOSIDE
     Indication: CNS GERMINOMA
     Dosage: CUMULATIVE DOSE OF 1500 MG/M2
     Route: 048

REACTIONS (1)
  - Neurotoxicity [Unknown]
